FAERS Safety Report 8151682-2 (Version None)
Quarter: 2012Q1

REPORT INFORMATION
  Report Type: 
  Country: None (occurrence: None)
  Receive Date: 20120221
  Receipt Date: 20120208
  Transmission Date: 20120608
  Serious: Yes (Other)
  Sender: FDA-Public Use
  Company Number: PL-AMGEN-POLSP2011066562

PATIENT
  Age: 61 Year
  Sex: Female

DRUGS (3)
  1. ENBREL [Suspect]
     Indication: RHEUMATOID ARTHRITIS
     Dosage: 50 MG/ 7, ONCE WEEKLY, FORMULATION: AMP
     Route: 058
     Dates: start: 20110714
  2. METHOTREXATE [Concomitant]
     Dosage: 10 MG,
     Route: 048
     Dates: start: 20100101
  3. METYPRED                           /00049601/ [Concomitant]
     Dosage: 4 MG, UNK
     Route: 048
     Dates: start: 20040101

REACTIONS (2)
  - THYROID NEOPLASM [None]
  - HYPERTHYROIDISM [None]
